FAERS Safety Report 20640940 (Version 3)
Quarter: 2023Q1

REPORT INFORMATION
  Report Type: Spontaneous
  Country: JP (occurrence: JP)
  Receive Date: 20220327
  Receipt Date: 20230331
  Transmission Date: 20230418
  Serious: Yes (Hospitalization, Other)
  Sender: FDA-Public Use
  Company Number: JP-BRISTOL-MYERS SQUIBB COMPANY-BMS-2020-102823

PATIENT
  Age: 64 Year
  Sex: Male
  Weight: 58.1 kg

DRUGS (3)
  1. YERVOY [Suspect]
     Active Substance: IPILIMUMAB
     Indication: Metastatic renal cell carcinoma
     Dosage: 65 MILLIGRAM, ONE TIME DOSE
     Route: 041
     Dates: start: 20201006, end: 20201027
  2. OPDIVO [Suspect]
     Active Substance: NIVOLUMAB
     Indication: Metastatic renal cell carcinoma
     Dosage: 240 MILLIGRAM, ONE TIME DOSE
     Route: 041
     Dates: start: 20201006, end: 20201027
  3. OPDIVO [Suspect]
     Active Substance: NIVOLUMAB
     Dosage: UNK
     Route: 041

REACTIONS (5)
  - Secondary adrenocortical insufficiency [Recovered/Resolved with Sequelae]
  - Adrenocorticotropic hormone deficiency [Recovered/Resolved with Sequelae]
  - Blood thyroid stimulating hormone abnormal [Unknown]
  - Blood corticotrophin abnormal [Unknown]
  - Malignant neoplasm progression [Unknown]

NARRATIVE: CASE EVENT DATE: 20201116
